FAERS Safety Report 12645509 (Version 1)
Quarter: 2016Q3

REPORT INFORMATION
  Report Type: Spontaneous
  Country: US (occurrence: US)
  Receive Date: 20160811
  Receipt Date: 20160811
  Transmission Date: 20161109
  Serious: No
  Sender: FDA-Public Use
  Company Number: US-ENDO PHARMACEUTICALS INC.-2015-004599

PATIENT
  Age: 26 Year
  Sex: Male

DRUGS (2)
  1. PREDNISONE TABLETS [Suspect]
     Active Substance: PREDNISONE
     Indication: INFLAMMATORY BOWEL DISEASE
     Route: 065
  2. PREDNISONE TABLETS [Suspect]
     Active Substance: PREDNISONE
     Indication: COLITIS ULCERATIVE

REACTIONS (1)
  - Drug ineffective [Unknown]
